FAERS Safety Report 9678830 (Version 1)
Quarter: 2013Q4

REPORT INFORMATION
  Report Type: Spontaneous
  Country: GB (occurrence: GB)
  Receive Date: 20131108
  Receipt Date: 20131108
  Transmission Date: 20140711
  Serious: Yes (Hospitalization)
  Sender: FDA-Public Use
  Company Number: GB-GLAXOSMITHKLINE-B0938642A

PATIENT
  Age: 38 Year
  Sex: Female
  Weight: 63.5 kg

DRUGS (2)
  1. SEROXAT [Suspect]
     Indication: DEPRESSED MOOD
     Route: 048
     Dates: start: 20110407, end: 20131010
  2. ANALGESICS [Concomitant]

REACTIONS (18)
  - Visual impairment [Recovering/Resolving]
  - Dizziness [Recovering/Resolving]
  - Palpitations [Recovering/Resolving]
  - Hyperhidrosis [Recovering/Resolving]
  - Tremor [Recovering/Resolving]
  - Blood pressure abnormal [Recovering/Resolving]
  - Malaise [Recovering/Resolving]
  - Tremor [Recovering/Resolving]
  - Somnolence [Recovering/Resolving]
  - Convulsion [Recovering/Resolving]
  - Skin burning sensation [Recovering/Resolving]
  - Pyrexia [Recovering/Resolving]
  - Balance disorder [Recovering/Resolving]
  - Chest discomfort [Recovering/Resolving]
  - Gastrointestinal disorder [Recovering/Resolving]
  - Ear disorder [Recovering/Resolving]
  - Paraesthesia [Recovering/Resolving]
  - Withdrawal syndrome [Recovering/Resolving]
